FAERS Safety Report 7744595-9 (Version None)
Quarter: 2011Q3

REPORT INFORMATION
  Report Type: 
  Country: None (occurrence: None)
  Receive Date: 20110912
  Receipt Date: 20110912
  Transmission Date: 20111222
  Serious: Yes (Death)
  Sender: FDA-Public Use
  Company Number: US-ROXANE LABORATORIES, INC.-2011-RO-01241RO

PATIENT
  Sex: Male

DRUGS (4)
  1. MORPHINE [Suspect]
  2. NEURONTIN [Suspect]
     Indication: PAIN IN EXTREMITY
  3. TRILEPTAL [Suspect]
     Indication: CONVULSION
  4. LORTAB [Suspect]
     Indication: PAIN IN EXTREMITY

REACTIONS (2)
  - COMPLETED SUICIDE [None]
  - GUN SHOT WOUND [None]
